FAERS Safety Report 25995991 (Version 3)
Quarter: 2025Q4

REPORT INFORMATION
  Report Type: Spontaneous
  Country: CA (occurrence: CA)
  Receive Date: 20251104
  Receipt Date: 20251209
  Transmission Date: 20260117
  Serious: Yes (Hospitalization, Other)
  Sender: PFIZER
  Company Number: CA-PFIZER INC-202500212682

PATIENT
  Age: 69 Year
  Sex: Female

DRUGS (2)
  1. IXIFI [Suspect]
     Active Substance: INFLIXIMAB-QBTX
     Indication: Colitis ulcerative
     Dosage: 600 MG, EVERY 8 WEEKS
     Route: 042
     Dates: start: 20251015
  2. PREDNISONE [Concomitant]
     Active Substance: PREDNISONE
     Dosage: 1 DF, DOSAGE INFO:  UNKNOWN
     Route: 065
     Dates: start: 20250818

REACTIONS (5)
  - Pulmonary embolism [Recovering/Resolving]
  - Condition aggravated [Unknown]
  - Heart rate increased [Unknown]
  - Hypotension [Unknown]
  - Dyspnoea [Unknown]

NARRATIVE: CASE EVENT DATE: 20251001
